FAERS Safety Report 7718146-9 (Version None)
Quarter: 2011Q3

REPORT INFORMATION
  Report Type: 
  Country: None (occurrence: None)
  Receive Date: 20110830
  Receipt Date: 20110824
  Transmission Date: 20111222
  Serious: Yes (Other)
  Sender: FDA-Public Use
  Company Number: CN-ROCHE-777703

PATIENT
  Sex: Female
  Weight: 45 kg

DRUGS (3)
  1. CELLCEPT [Suspect]
     Indication: RENAL TRANSPLANT
     Route: 048
     Dates: start: 20060119
  2. PROGRAF [Concomitant]
     Indication: RENAL TRANSPLANT
     Dosage: 1 MG IN THE MORNING AND 1.5 MG IN THE AFTERNOON.
     Route: 048
     Dates: start: 20060415
  3. CYCLOSPORINE [Suspect]
     Indication: RENAL TRANSPLANT
     Route: 048
     Dates: start: 20060119, end: 20060415

REACTIONS (2)
  - DIARRHOEA [None]
  - LIVER INJURY [None]
